FAERS Safety Report 9680005 (Version 3)
Quarter: 2014Q3

REPORT INFORMATION
  Report Type: Spontaneous
  Country: US (occurrence: US)
  Receive Date: 20131110
  Receipt Date: 20140804
  Transmission Date: 20150326
  Serious: Yes (Hospitalization, Other)
  Sender: FDA-Public Use
  Company Number: US-SA-2013SA114091

PATIENT
  Age: 71 Year
  Sex: Female
  Weight: 71.6 kg

DRUGS (14)
  1. MAG-OX [Concomitant]
  2. SINGULAIR [Concomitant]
     Active Substance: MONTELUKAST SODIUM
  3. OMEPRAZOLE. [Concomitant]
     Active Substance: OMEPRAZOLE
  4. BIOTIN [Concomitant]
     Active Substance: BIOTIN
  5. METHENAMINE [Concomitant]
     Active Substance: METHENAMINE
  6. AMITRIPTYLINE [Concomitant]
     Active Substance: AMITRIPTYLINE
  7. POTASSIUM CHLORIDE. [Concomitant]
     Active Substance: POTASSIUM CHLORIDE
  8. SPIRIVA [Concomitant]
     Active Substance: TIOTROPIUM BROMIDE MONOHYDRATE
  9. GABAPENTIN. [Concomitant]
     Active Substance: GABAPENTIN
  10. LASIX [Suspect]
     Active Substance: FUROSEMIDE
     Indication: HYPERTENSION
     Route: 065
     Dates: end: 201310
  11. ADVIL [Suspect]
     Active Substance: IBUPROFEN
     Indication: BACK PAIN
     Route: 048
     Dates: end: 201310
  12. CALCIUM CITRATE/VITAMIN D NOS [Concomitant]
  13. VITAMIN B12 [Concomitant]
     Active Substance: CYANOCOBALAMIN
     Dosage: ALSO TAKE ORAL VITAMIN B12
     Route: 030
  14. NORVASC [Suspect]
     Active Substance: AMLODIPINE BESYLATE
     Indication: HYPERTENSION
     Route: 065
     Dates: end: 201310

REACTIONS (15)
  - Swelling [Recovering/Resolving]
  - Dyspnoea [Recovering/Resolving]
  - Adverse drug reaction [Unknown]
  - Amnesia [Recovering/Resolving]
  - Tremor [Recovering/Resolving]
  - Limb discomfort [Recovering/Resolving]
  - Somnolence [Recovering/Resolving]
  - Dysgeusia [Recovering/Resolving]
  - Feeling abnormal [Recovering/Resolving]
  - Asthenia [Recovering/Resolving]
  - Somnolence [Unknown]
  - Peripheral coldness [Recovering/Resolving]
  - Blood potassium decreased [Unknown]
  - Hypotension [Unknown]
  - Musculoskeletal discomfort [Recovering/Resolving]

NARRATIVE: CASE EVENT DATE: 201310
